FAERS Safety Report 15197315 (Version 1)
Quarter: 2018Q3

REPORT INFORMATION
  Report Type: Spontaneous
  Country: US (occurrence: US)
  Receive Date: 20180626
  Receipt Date: 20180626
  Transmission Date: 20181010
  Serious: No
  Sender: FDA-Public Use
  Company Number: None

PATIENT
  Age: 76 Year
  Sex: Female

DRUGS (4)
  1. MEPTROLOL [Concomitant]
  2. PROCRIT [Suspect]
     Active Substance: ERYTHROPOIETIN
     Indication: NEPHROGENIC ANAEMIA
     Dosage: ?          OTHER DOSE:20,000 UNIT GOW;OTHER FREQUENCY:OTHER;?
     Route: 058
     Dates: start: 20180522, end: 20180626
  3. AMLODIPINE [Concomitant]
     Active Substance: AMLODIPINE BESYLATE
  4. ATROVASTATIN [Concomitant]
     Active Substance: ATORVASTATIN CALCIUM

REACTIONS (3)
  - Extra dose administered [None]
  - Transcription medication error [None]
  - Drug dispensing error [None]

NARRATIVE: CASE EVENT DATE: 20180620
